FAERS Safety Report 7788294-6 (Version None)
Quarter: 2011Q3

REPORT INFORMATION
  Report Type: 
  Country: None (occurrence: None)
  Receive Date: 20110930
  Receipt Date: 20110922
  Transmission Date: 20111222
  Serious: Yes (Hospitalization)
  Sender: FDA-Public Use
  Company Number: DE-JNJFOC-20110809937

PATIENT
  Sex: Female

DRUGS (1)
  1. NICORETTE [Suspect]
     Indication: SMOKING CESSATION THERAPY
     Dosage: 1 GUM ONCE
     Route: 048
     Dates: start: 20110531, end: 20110531

REACTIONS (5)
  - THROAT IRRITATION [None]
  - DYSPNOEA [None]
  - NAUSEA [None]
  - ANGIOEDEMA [None]
  - URTICARIA [None]
